FAERS Safety Report 5614419-4 (Version None)
Quarter: 2008Q1

REPORT INFORMATION
  Report Type: 
  Country: None (occurrence: None)
  Receive Date: 20080130
  Receipt Date: 20080122
  Transmission Date: 20080703
  Serious: Yes (Other)
  Sender: FDA-Public Use
  Company Number: 2008AP000240

PATIENT
  Age: 37 Year
  Sex: Female

DRUGS (8)
  1. PAROXETINE HCL [Suspect]
     Indication: DEPRESSION
     Dosage: 60 MG;TAB;PO;QD; 40 MG;TAB;PO;QD;30 MG;TAB;PO;QD
     Route: 048
     Dates: start: 19960902, end: 19970916
  2. PAROXETINE HCL [Suspect]
     Indication: DEPRESSION
     Dosage: 60 MG;TAB;PO;QD; 40 MG;TAB;PO;QD;30 MG;TAB;PO;QD
     Route: 048
     Dates: start: 19971201, end: 19990701
  3. PAROXETINE HCL [Suspect]
     Indication: DEPRESSION
     Dosage: 60 MG;TAB;PO;QD; 40 MG;TAB;PO;QD;30 MG;TAB;PO;QD
     Route: 048
     Dates: start: 19960902
  4. PAROXETINE HCL [Suspect]
     Indication: DEPRESSION
     Dosage: 60 MG;TAB;PO;QD; 40 MG;TAB;PO;QD;30 MG;TAB;PO;QD
     Route: 048
     Dates: start: 20040401
  5. CITALOPRAM HYDROBROMIDE [Concomitant]
  6. VENLAFAXINE HCL [Concomitant]
  7. SERTRALINE HYDROCHLORIDE [Concomitant]
  8. FLUOXETINE HCL [Concomitant]

REACTIONS (14)
  - AGGRESSION [None]
  - AGITATION [None]
  - ANXIETY [None]
  - CONFUSIONAL STATE [None]
  - DIZZINESS [None]
  - INFLUENZA LIKE ILLNESS [None]
  - INTENTIONAL SELF-INJURY [None]
  - MENTAL IMPAIRMENT [None]
  - NAUSEA [None]
  - PAIN [None]
  - SUICIDAL IDEATION [None]
  - TREMOR [None]
  - VISION BLURRED [None]
  - WITHDRAWAL SYNDROME [None]
